FAERS Safety Report 4356897-7 (Version None)
Quarter: 2004Q2

REPORT INFORMATION
  Report Type: 
  Country: None (occurrence: None)
  Receive Date: 20040507
  Receipt Date: 20040420
  Transmission Date: 20050107
  Serious: Yes (Death, Hospitalization, Other)
  Sender: FDA-Public Use
  Company Number: EWC040438868

PATIENT
  Age: 54 Year
  Sex: Female

DRUGS (15)
  1. FORTEO [Suspect]
     Indication: OSTEOPOROSIS
     Dates: start: 20031210
  2. OXYCONTIN [Concomitant]
  3. CELEBRA (CELECOXIB) [Concomitant]
  4. AMITRIPTYLINE HCL [Concomitant]
  5. RILAMIR (TRIAZOLAM) [Concomitant]
  6. FOSAMAX [Concomitant]
  7. CALCIUM [Concomitant]
  8. VITAMIN D [Concomitant]
  9. UNIKALK M D-VITAMIN [Concomitant]
  10. PAMOL (PARACETAMOL) [Concomitant]
  11. THIAMIN [Concomitant]
  12. ZINK (ZINC SULFATE) [Concomitant]
  13. VITAMIN CAP [Concomitant]
  14. LLOCON [Concomitant]
  15. HYDROCORTISONE BUTYRATE [Concomitant]

REACTIONS (16)
  - ANOREXIA [None]
  - DEPRESSION [None]
  - DERMATITIS [None]
  - FEELING ABNORMAL [None]
  - GENERAL PHYSICAL HEALTH DETERIORATION [None]
  - HAEMATEMESIS [None]
  - HEPATIC FAILURE [None]
  - HYPOALBUMINAEMIA [None]
  - HYPOVITAMINOSIS [None]
  - ILEUS PARALYTIC [None]
  - MALNUTRITION [None]
  - MARKEDLY REDUCED DIETARY INTAKE [None]
  - MENTAL DISORDER [None]
  - NAUSEA [None]
  - RENAL FAILURE [None]
  - VOMITING [None]
